FAERS Safety Report 17087347 (Version 1)
Quarter: 2019Q4

REPORT INFORMATION
  Report Type: Spontaneous
  Country: EC (occurrence: EC)
  Receive Date: 20191128
  Receipt Date: 20191128
  Transmission Date: 20200122
  Serious: Yes (Other)
  Sender: FDA-Public Use
  Company Number: EC-PFIZER INC-2019509174

PATIENT
  Sex: Female

DRUGS (1)
  1. DEPO-PROVERA [Suspect]
     Active Substance: MEDROXYPROGESTERONE ACETATE
     Indication: ENDOMETRIOSIS
     Dosage: UNK (3 SYRINGES IN 4 MONTH)

REACTIONS (5)
  - Erythema [Unknown]
  - Urticaria [Unknown]
  - Off label use [Unknown]
  - Hypotension [Unknown]
  - Arthritis [Unknown]
